FAERS Safety Report 8723680 (Version 2)
Quarter: 2013Q1

REPORT INFORMATION
  Report Type: Spontaneous
  Country: US (occurrence: US)
  Receive Date: 20120815
  Receipt Date: 20130103
  Transmission Date: 20140127
  Serious: No
  Sender: FDA-Public Use
  Company Number: US-BIOGENIDEC-2012BI029910

PATIENT
  Age: 23 None
  Sex: Female

DRUGS (22)
  1. TYSABRI [Suspect]
     Indication: MULTIPLE SCLEROSIS
     Route: 042
     Dates: start: 20110401, end: 201207
  2. FENTANYL PATCH [Concomitant]
     Indication: BACK PAIN
  3. FENTANYL PATCH [Concomitant]
     Indication: INTERVERTEBRAL DISC DEGENERATION
  4. FENTANYL PATCH [Concomitant]
     Indication: SCOLIOSIS
  5. FENTANYL PATCH [Concomitant]
     Indication: SPINAL COLUMN STENOSIS
  6. HYDROCODONE [Concomitant]
     Indication: BACK PAIN
  7. HYDROCODONE [Concomitant]
     Indication: INTERVERTEBRAL DISC DEGENERATION
  8. HYDROCODONE [Concomitant]
     Indication: SCOLIOSIS
  9. HYDROCODONE [Concomitant]
     Indication: SPINAL COLUMN STENOSIS
  10. MORPHINE [Concomitant]
     Indication: BACK PAIN
  11. MORPHINE [Concomitant]
     Indication: INTERVERTEBRAL DISC DEGENERATION
  12. MORPHINE [Concomitant]
     Indication: SCOLIOSIS
  13. MORPHINE [Concomitant]
     Indication: SPINAL COLUMN STENOSIS
  14. OXYCODONE [Concomitant]
     Indication: BACK PAIN
  15. OXYCODONE [Concomitant]
     Indication: INTERVERTEBRAL DISC DEGENERATION
  16. OXYCODONE [Concomitant]
     Indication: SCOLIOSIS
  17. OXYCODONE [Concomitant]
     Indication: SPINAL COLUMN STENOSIS
  18. FLEXERIL [Concomitant]
     Indication: BACK PAIN
  19. FLEXERIL [Concomitant]
     Indication: INTERVERTEBRAL DISC DEGENERATION
  20. FLEXERIL [Concomitant]
     Indication: SCOLIOSIS
  21. FLEXERIL [Concomitant]
     Indication: SPINAL COLUMN STENOSIS
  22. ADDERALL [Concomitant]
     Indication: ATTENTION DEFICIT/HYPERACTIVITY DISORDER

REACTIONS (12)
  - Balance disorder [Not Recovered/Not Resolved]
  - Memory impairment [Not Recovered/Not Resolved]
  - Renal impairment [Unknown]
  - Obesity [Recovered/Resolved]
  - Weight decreased [Unknown]
  - Hepatic function abnormal [Unknown]
  - Jaundice [Recovered/Resolved]
  - Central nervous system lesion [Unknown]
  - Multiple sclerosis [Not Recovered/Not Resolved]
  - Nausea [Not Recovered/Not Resolved]
  - Fatigue [Not Recovered/Not Resolved]
  - Vomiting [Not Recovered/Not Resolved]
